FAERS Safety Report 13261538 (Version 1)
Quarter: 2017Q1

REPORT INFORMATION
  Report Type: Spontaneous
  Country: TW (occurrence: TW)
  Receive Date: 20170222
  Receipt Date: 20170222
  Transmission Date: 20170428
  Serious: Yes (Hospitalization, Other)
  Sender: FDA-Public Use
  Company Number: TW-PFIZER INC-2017075323

PATIENT
  Sex: Female

DRUGS (1)
  1. EFEXOR [Suspect]
     Active Substance: VENLAFAXINE HYDROCHLORIDE
     Indication: AFFECTIVE DISORDER
     Dosage: UNK

REACTIONS (5)
  - Feeling abnormal [Unknown]
  - Fall [Unknown]
  - Abasia [Not Recovered/Not Resolved]
  - Suicide attempt [Unknown]
  - Depression [Unknown]
